FAERS Safety Report 4782802-5 (Version None)
Quarter: 2005Q3

REPORT INFORMATION
  Report Type: 
  Country: None (occurrence: None)
  Receive Date: 20050914
  Receipt Date: 20041201
  Transmission Date: 20060218
  Serious: Yes (Death, Hospitalization)
  Sender: FDA-Public Use
  Company Number: 163-20785-03090733

PATIENT
  Age: 32 Year
  Sex: Male

DRUGS (2)
  1. THALOMID [Suspect]
     Indication: APHTHOUS STOMATITIS
     Dosage: 200 MG, DAILY, ORAL; 200 MG, DAILY, PO
     Route: 048
     Dates: start: 20030523, end: 20030101
  2. THALOMID [Suspect]
     Indication: APHTHOUS STOMATITIS
     Dosage: 200 MG, DAILY, ORAL; 200 MG, DAILY, PO
     Route: 048
     Dates: start: 20040409, end: 20040101

REACTIONS (5)
  - BACTERIAL INFECTION [None]
  - CHEST PAIN [None]
  - DEATH [None]
  - DYSPHAGIA [None]
  - OESOPHAGITIS [None]
